FAERS Safety Report 15568116 (Version 3)
Quarter: 2018Q4

REPORT INFORMATION
  Report Type: Spontaneous
  Country: JP (occurrence: JP)
  Receive Date: 20181030
  Receipt Date: 20181127
  Transmission Date: 20190205
  Serious: Yes (Death, Hospitalization)
  Sender: FDA-Public Use
  Company Number: JP-DSJP-DSJ-2018-146325

PATIENT

DRUGS (12)
  1. VIVIANT [Concomitant]
     Active Substance: BAZEDOXIFENE
     Indication: OSTEOPOROSIS
     Dosage: 20 MG, QD
     Route: 048
     Dates: end: 20160628
  2. EDIROL [Concomitant]
     Active Substance: ELDECALCITOL
     Indication: OSTEOPOROSIS
     Dosage: 0.75 ?G, QD
     Route: 048
     Dates: end: 20160628
  3. DROLEPTAN [Concomitant]
     Active Substance: DROPERIDOL
     Indication: ANAESTHESIA PROCEDURE
     Dosage: 2 ML, QD
     Route: 041
     Dates: start: 20160629
  4. ACELIO [Concomitant]
     Active Substance: ACETAMINOPHEN
     Dosage: 750 MG, QD
     Route: 041
     Dates: start: 20160629
  5. LIXIANA OD TABLETS 30MG [Suspect]
     Active Substance: EDOXABAN TOSYLATE
     Dosage: 30 MG, QD
     Route: 048
     Dates: start: 20160703, end: 20160705
  6. LIXIANA OD TABLETS 30MG [Suspect]
     Active Substance: EDOXABAN TOSYLATE
     Indication: POST PROCEDURAL PULMONARY EMBOLISM
     Dosage: 30MG/DAY
     Route: 048
  7. BROTIZOLAM [Concomitant]
     Active Substance: BROTIZOLAM
     Indication: SLEEP DISORDER
     Dosage: 2.5 MG, QD
     Route: 048
     Dates: end: 20160628
  8. BLOPRESS [Concomitant]
     Active Substance: CANDESARTAN CILEXETIL
     Indication: HYPERTENSION
     Dosage: 4 MG, QD
     Route: 048
     Dates: end: 20160628
  9. ELENTAL [Concomitant]
     Active Substance: AMINO ACIDS\CARBOHYDRATES\MINERALS\SOYBEAN OIL\VITAMINS
     Indication: POSTOPERATIVE CARE
     Dosage: 240 G, QD
     Route: 048
     Dates: start: 20160703
  10. CEFMETAZOLE                        /00528702/ [Concomitant]
     Indication: INFECTION PROPHYLAXIS
     Dosage: 1 G, BID
     Route: 041
     Dates: start: 20160629
  11. BRIDION [Concomitant]
     Active Substance: SUGAMMADEX
     Indication: ANAESTHESIA PROCEDURE
     Dosage: 100 MG, QD
     Route: 041
     Dates: start: 20160629
  12. LEPETAN [Concomitant]
     Active Substance: BUPRENORPHINE HYDROCHLORIDE
     Indication: ANAESTHESIA PROCEDURE
     Dosage: 0.5 ML, QD
     Route: 041
     Dates: start: 20160629

REACTIONS (2)
  - Hypoglycaemia [Unknown]
  - Pulmonary embolism [Recovering/Resolving]

NARRATIVE: CASE EVENT DATE: 20160705
